FAERS Safety Report 5248549-6 (Version None)
Quarter: 2007Q1

REPORT INFORMATION
  Report Type: 
  Country: None (occurrence: None)
  Receive Date: 20070222
  Receipt Date: 20070213
  Transmission Date: 20070707
  Serious: Yes (Other)
  Sender: FDA-Public Use
  Company Number: CA-GDP-0714281

PATIENT
  Age: 21 Year
  Sex: Female

DRUGS (14)
  1. DIFFERIN [Suspect]
     Dates: start: 20000501, end: 20000501
  2. DIFFERIN [Suspect]
     Dates: start: 20050201
  3. PROACTIV [Suspect]
     Indication: ACNE
  4. TETRACYCLINE [Suspect]
     Indication: ACNE
  5. T-STAT PADS [Suspect]
     Indication: ACNE
  6. STIEVAMYCIN [Suspect]
     Indication: ACNE
  7. OXY [Suspect]
     Indication: ACNE
  8. PERSA-GEL W [Suspect]
     Indication: ACNE
  9. SPECTRO GEL [Suspect]
     Indication: ACNE
  10. ERYPAK [Suspect]
     Indication: ACNE
     Dates: start: 19991101
  11. SOLUGEL /TUN/ [Suspect]
     Indication: ACNE
     Dates: start: 19991101
  12. SOLUGEL /TUN/ [Suspect]
     Indication: ACNE
     Dates: start: 20000701
  13. ALESSE [Suspect]
     Indication: CONTRACEPTION
     Dates: start: 20000701
  14. CLINDAMYCIN [Suspect]
     Indication: ACNE

REACTIONS (1)
  - THYROID CANCER [None]
